FAERS Safety Report 5289034-5 (Version None)
Quarter: 2007Q2

REPORT INFORMATION
  Report Type: 
  Country: None (occurrence: None)
  Receive Date: 20070405
  Receipt Date: 20070328
  Transmission Date: 20071010
  Serious: Yes (Life-Threatening)
  Sender: FDA-Public Use
  Company Number: JP-PFIZER INC-2007024854

PATIENT
  Age: 64 Year
  Sex: Male

DRUGS (4)
  1. DOXORUBICIN HYDROCHLORIDE [Suspect]
     Indication: HEPATIC NEOPLASM MALIGNANT
     Dosage: DAILY DOSE:20MG
     Dates: start: 20010508, end: 20010508
  2. MITOMYCIN [Suspect]
     Indication: HEPATIC NEOPLASM MALIGNANT
     Dosage: DAILY DOSE:10MG
     Dates: start: 20010508, end: 20010508
  3. LIPIODOL [Suspect]
     Indication: HEPATIC NEOPLASM MALIGNANT
     Dosage: DAILY DOSE:4ML
     Dates: start: 20010508, end: 20010508
  4. STARCH [Concomitant]
     Dates: start: 20010508, end: 20010508

REACTIONS (1)
  - BILE DUCT STENOSIS [None]
